FAERS Safety Report 6760979-X (Version None)
Quarter: 2010Q2

REPORT INFORMATION
  Report Type: 
  Country: None (occurrence: None)
  Receive Date: 20100608
  Receipt Date: 20100602
  Transmission Date: 20101027
  Serious: Yes (Hospitalization)
  Sender: FDA-Public Use
  Company Number: A0794452A

PATIENT
  Sex: Male

DRUGS (1)
  1. AVANDIA [Suspect]
     Indication: DIABETES MELLITUS
     Dosage: 8MG PER DAY
     Route: 048
     Dates: start: 20020101, end: 20081130

REACTIONS (8)
  - CARDIAC DISORDER [None]
  - CHEST PAIN [None]
  - DYSPNOEA [None]
  - FLUID RETENTION [None]
  - IRON DEFICIENCY [None]
  - OEDEMA PERIPHERAL [None]
  - PAIN IN EXTREMITY [None]
  - WEIGHT INCREASED [None]
